FAERS Safety Report 16052500 (Version 1)
Quarter: 2019Q1

REPORT INFORMATION
  Report Type: Spontaneous
  Country: US (occurrence: US)
  Receive Date: 20190308
  Receipt Date: 20190308
  Transmission Date: 20190418
  Serious: Yes (Other)
  Sender: FDA-Public Use
  Company Number: US-SA-2019SA060940

PATIENT
  Age: 83 Year
  Sex: Female

DRUGS (1)
  1. ZANTAC [Suspect]
     Active Substance: RANITIDINE HYDROCHLORIDE
     Indication: GASTRIC DISORDER
     Dosage: 75 MG, QD
     Route: 065

REACTIONS (3)
  - Renal haemorrhage [Unknown]
  - Abdominal discomfort [Unknown]
  - Diarrhoea [Unknown]
